FAERS Safety Report 6774145-5 (Version None)
Quarter: 2010Q2

REPORT INFORMATION
  Report Type: 
  Country: None (occurrence: None)
  Receive Date: 20100616
  Receipt Date: 20100616
  Transmission Date: 20101027
  Serious: Yes (Other)
  Sender: FDA-Public Use
  Company Number: None

PATIENT
  Age: 15 Year
  Sex: Male
  Weight: 25.855 kg

DRUGS (1)
  1. BANZEL [Suspect]
     Indication: CONVULSION
     Dosage: 600MG TWICE A DAY PO
     Route: 048
     Dates: start: 20100308, end: 20100612

REACTIONS (4)
  - ABNORMAL BEHAVIOUR [None]
  - FEAR [None]
  - MENTAL DISORDER [None]
  - PARANOIA [None]
